FAERS Safety Report 15743977 (Version 1)
Quarter: 2018Q4

REPORT INFORMATION
  Report Type: Spontaneous
  Country: US (occurrence: US)
  Receive Date: 20181220
  Receipt Date: 20181220
  Transmission Date: 20190205
  Serious: No
  Sender: FDA-Public Use
  Company Number: US-FRESENIUS KABI-FK201812890

PATIENT

DRUGS (2)
  1. SODIUM CHLORIDE INJECTION, USP 0.9% [Suspect]
     Active Substance: SODIUM CHLORIDE
     Indication: MEDICATION DILUTION
     Dosage: 8 CCS SODIUM CHLORIDE (MIXED WITH BOTOX PRIOR TO ADMINISTRATION TO PATIENT)
     Route: 030
     Dates: start: 20181211, end: 20181211
  2. BOTULINUM TOXIN TYPE A [Suspect]
     Active Substance: BOTULINUM TOXIN TYPE A
     Indication: MIGRAINE
     Route: 030
     Dates: start: 20181211, end: 20181211

REACTIONS (2)
  - Injection site rash [Unknown]
  - Injection site urticaria [Unknown]

NARRATIVE: CASE EVENT DATE: 20181211
